FAERS Safety Report 13515981 (Version 4)
Quarter: 2020Q1

REPORT INFORMATION
  Report Type: Report from Study
  Country: JP (occurrence: JP)
  Receive Date: 20170505
  Receipt Date: 20200120
  Transmission Date: 20200409
  Serious: Yes (Hospitalization, Other)
  Sender: FDA-Public Use
  Company Number: JP-BRISTOL-MYERS SQUIBB COMPANY-BMS-2016-021020

PATIENT
  Age: 82 Year
  Sex: Male
  Weight: 58 kg

DRUGS (2)
  1. NIVOLUMAB [Suspect]
     Active Substance: NIVOLUMAB
     Indication: NON-SMALL CELL LUNG CANCER RECURRENT
     Dosage: 3 MG/KG, Q2MO
     Route: 041
     Dates: start: 20160217, end: 201704
  2. RINDERON [BETAMETHASONE] [Concomitant]
     Active Substance: BETAMETHASONE
     Indication: RASH
     Dosage: 2 MG, Q2WK
     Route: 048
     Dates: start: 2016

REACTIONS (1)
  - Enterocolitis [Not Recovered/Not Resolved]

NARRATIVE: CASE EVENT DATE: 201704
